FAERS Safety Report 15107841 (Version 1)
Quarter: 2018Q3

REPORT INFORMATION
  Report Type: Spontaneous
  Country: IT (occurrence: IT)
  Receive Date: 20180704
  Receipt Date: 20180704
  Transmission Date: 20181010
  Serious: Yes (Other)
  Sender: FDA-Public Use
  Company Number: IT-TEVA-2018-IT-918424

PATIENT
  Age: 72 Year
  Sex: Female

DRUGS (12)
  1. DRAMION 30 MG COMPRESSE A RILASCIO MODIFICATO [Concomitant]
     Route: 065
  2. CRESTOR 20 MG COMPRESSE RIVESTITE CON FILM [Concomitant]
     Route: 065
  3. LEVOFLOXACIN. [Suspect]
     Active Substance: LEVOFLOXACIN
     Indication: INFLUENZA
     Route: 048
     Dates: start: 20180227, end: 20180303
  4. CLOPIDOGREL [Concomitant]
     Active Substance: CLOPIDOGREL BISULFATE
     Route: 065
  5. JANUMET 50 MG/1,000 MG FILM?COATED TABLETS [Concomitant]
     Route: 065
  6. RANEXA 500 MG PROLONGED?RELEASE TABLETS [Concomitant]
  7. ZUGLIMET [Concomitant]
     Active Substance: METFORMIN HYDROCHLORIDE
     Route: 065
  8. METOPROLOL. [Concomitant]
     Active Substance: METOPROLOL
     Route: 065
  9. PANTOPRAZOLE [Concomitant]
     Active Substance: PANTOPRAZOLE
     Route: 065
  10. MINITRAN 5 MG/24 ORE CEROTTI TRANSDERMICI [Concomitant]
     Route: 065
  11. CARDIOASPIRIN [Concomitant]
     Active Substance: ASPIRIN
     Route: 065
  12. TAREG 320 MG COMPRESSE RIVESTITE CON FILM [Concomitant]
     Route: 065

REACTIONS (2)
  - Abdominal pain upper [Recovering/Resolving]
  - Nausea [Recovering/Resolving]

NARRATIVE: CASE EVENT DATE: 20180228
